FAERS Safety Report 23687418 (Version 1)
Quarter: 2024Q1

REPORT INFORMATION
  Report Type: Spontaneous
  Country: US (occurrence: US)
  Receive Date: 20240329
  Receipt Date: 20240329
  Transmission Date: 20240410
  Serious: No
  Sender: FDA-Public Use
  Company Number: US-002147023-NVSC2024US061010

PATIENT

DRUGS (2)
  1. KISQALI [Suspect]
     Active Substance: RIBOCICLIB
     Indication: Product used for unknown indication
     Dosage: UNK
     Route: 065
  2. IBRANCE [Suspect]
     Active Substance: PALBOCICLIB
     Indication: Product used for unknown indication
     Dosage: 125 MG (1-21 EVERY 28 DAYS)
     Route: 048
     Dates: start: 20240223

REACTIONS (6)
  - Hypersensitivity [Recovering/Resolving]
  - Full blood count decreased [Unknown]
  - Rhinorrhoea [Unknown]
  - Eye irritation [Unknown]
  - Pain in extremity [Recovering/Resolving]
  - Back pain [Recovering/Resolving]
